FAERS Safety Report 13905954 (Version 1)
Quarter: 2017Q3

REPORT INFORMATION
  Report Type: Spontaneous
  Country: US (occurrence: US)
  Receive Date: 20170825
  Receipt Date: 20170825
  Transmission Date: 20171127
  Serious: No
  Sender: FDA-Public Use
  Company Number: None

PATIENT
  Age: 68 Year
  Sex: Female
  Weight: 83.7 kg

DRUGS (11)
  1. IBUPROFEN. [Concomitant]
     Active Substance: IBUPROFEN
  2. SERTRALINE [Concomitant]
     Active Substance: SERTRALINE HYDROCHLORIDE
  3. AMOXICILLIN. [Concomitant]
     Active Substance: AMOXICILLIN
  4. TUMS EX [Concomitant]
     Active Substance: CALCIUM CARBONATE
  5. ASPIRIN. [Concomitant]
     Active Substance: ASPIRIN
  6. PRESERVISION AREDS [Concomitant]
     Active Substance: MINERALS\VITAMINS
  7. PROLIA [Suspect]
     Active Substance: DENOSUMAB
     Indication: OSTEOPOROSIS
     Dosage: ?          OTHER FREQUENCY:Q 6 MONTHS;?
     Route: 058
     Dates: start: 20170324, end: 20170324
  8. LEVOTHYROXINE. [Concomitant]
     Active Substance: LEVOTHYROXINE
  9. CYCLOBENZAPRINE. [Concomitant]
     Active Substance: CYCLOBENZAPRINE
  10. MULTIVITAMIN [Concomitant]
     Active Substance: VITAMINS
  11. VITAMIN D [Concomitant]
     Active Substance: CHOLECALCIFEROL

REACTIONS (4)
  - Therapy non-responder [None]
  - Asthenia [None]
  - Injection site pain [None]
  - Headache [None]

NARRATIVE: CASE EVENT DATE: 20170324
